FAERS Safety Report 7386733-6 (Version None)
Quarter: 2011Q1

REPORT INFORMATION
  Report Type: 
  Country: None (occurrence: None)
  Receive Date: 20110315
  Receipt Date: 20110301
  Transmission Date: 20110831
  Serious: Yes (Other)
  Sender: FDA-Public Use
  Company Number: 2011027764

PATIENT
  Age: 26 Year
  Sex: Male

DRUGS (1)
  1. HAEMATE P (ANTIHEMOPHILIC FACTOR (HUMAN) VWF, DRIED, PASTEURIZED) LOT# [Suspect]
     Indication: FACTOR VIII DEFICIENCY
     Dosage: 2000 IU INTRAVENOUS (NOT OTHERWISE SPECIFIED)
     Route: 042
     Dates: start: 20110206, end: 20110301

REACTIONS (4)
  - TUNNEL VISION [None]
  - VISUAL IMPAIRMENT [None]
  - DIZZINESS [None]
  - HYPERHIDROSIS [None]
